FAERS Safety Report 11577411 (Version 2)
Quarter: 2015Q4

REPORT INFORMATION
  Report Type: Report from Study
  Country: US (occurrence: US)
  Receive Date: 20150930
  Receipt Date: 20151001
  Transmission Date: 20160304
  Serious: Yes (Hospitalization)
  Sender: FDA-Public Use
  Company Number: US-ABBVIE-15K-163-1470210-00

PATIENT
  Sex: Female

DRUGS (2)
  1. HUMIRA [Suspect]
     Active Substance: ADALIMUMAB
     Indication: RHEUMATOID ARTHRITIS
     Route: 058
     Dates: start: 201401, end: 201410
  2. HUMIRA [Suspect]
     Active Substance: ADALIMUMAB
     Route: 058
     Dates: start: 20150518, end: 201506

REACTIONS (3)
  - Pain [Recovered/Resolved]
  - Wound [Recovered/Resolved]
  - Lung disorder [Unknown]

NARRATIVE: CASE EVENT DATE: 2014
